FAERS Safety Report 6144361-4 (Version None)
Quarter: 2009Q2

REPORT INFORMATION
  Report Type: 
  Country: None (occurrence: None)
  Receive Date: 20090406
  Receipt Date: 20090323
  Transmission Date: 20091009
  Serious: Yes (Other)
  Sender: FDA-Public Use
  Company Number: US-ROCHE-502770

PATIENT
  Sex: Female

DRUGS (2)
  1. PEGASYS [Suspect]
     Indication: HEPATITIS C
     Dosage: FORM: PFS, 2ND INDICATION:INDOLENT B-CELL LYMPHOMA
     Route: 065
     Dates: start: 20070801, end: 20080201
  2. RIBAVIRIN [Suspect]
     Dosage: (DIVIDED DOSES), 2ND INDICATION:INDOLENT B-CELL LYMPHOMA
     Route: 065
     Dates: start: 20070801, end: 20080201

REACTIONS (2)
  - B-CELL LYMPHOMA RECURRENT [None]
  - PYREXIA [None]
